FAERS Safety Report 26087092 (Version 1)
Quarter: 2025Q4

REPORT INFORMATION
  Report Type: Spontaneous
  Country: US (occurrence: None)
  Receive Date: 20251125
  Receipt Date: 20251125
  Transmission Date: 20260118
  Serious: No
  Sender: FDA-CTU
  Company Number: None

PATIENT
  Age: 56 Year
  Sex: Female
  Weight: 81 kg

DRUGS (1)
  1. EMGALITY [Suspect]
     Active Substance: GALCANEZUMAB-GNLM
     Indication: Migraine prophylaxis
     Route: 030
     Dates: start: 20251114

REACTIONS (7)
  - Chest discomfort [None]
  - Headache [None]
  - Tinnitus [None]
  - New daily persistent headache [None]
  - Disturbance in attention [None]
  - Sleep disorder [None]
  - Depression [None]

NARRATIVE: CASE EVENT DATE: 20251114
